FAERS Safety Report 11910003 (Version 1)
Quarter: 2016Q1

REPORT INFORMATION
  Report Type: Spontaneous
  Country: US (occurrence: None)
  Receive Date: 20160111
  Receipt Date: 20160111
  Transmission Date: 20160526
  Serious: Yes (Life-Threatening, Hospitalization)
  Sender: FDA-Public Use
  Company Number: None

PATIENT
  Age: 20 Year
  Sex: Male
  Weight: 90.72 kg

DRUGS (4)
  1. RISPERIDONE 2 MG ZYDUS [Suspect]
     Active Substance: RISPERIDONE
     Indication: SCHIZOAFFECTIVE DISORDER
     Dosage: 1 PILL
     Route: 048
  2. BENZTROPINE BAYSHORE [Suspect]
     Active Substance: BENZTROPINE
     Indication: DRUG THERAPY
     Route: 048
     Dates: start: 20151110, end: 20151110
  3. ASA [Concomitant]
     Active Substance: ASPIRIN
  4. SERTRALINE [Concomitant]
     Active Substance: SERTRALINE HYDROCHLORIDE

REACTIONS (3)
  - Ventricular tachycardia [None]
  - Malaise [None]
  - Heart rate irregular [None]

NARRATIVE: CASE EVENT DATE: 20151106
